FAERS Safety Report 7911683-3 (Version None)
Quarter: 2011Q4

REPORT INFORMATION
  Report Type: 
  Country: None (occurrence: None)
  Receive Date: 20111101
  Receipt Date: 20101022
  Transmission Date: 20120403
  Serious: Yes (Hospitalization)
  Sender: FDA-Public Use
  Company Number: 251219USA

PATIENT

DRUGS (1)
  1. CARBAMAZEPINE [Suspect]
     Dosage: 100 MG, ORAL
     Route: 048

REACTIONS (1)
  - DRUG LEVEL INCREASED [None]
